FAERS Safety Report 14488493 (Version 1)
Quarter: 2018Q1

REPORT INFORMATION
  Report Type: Spontaneous
  Country: ES (occurrence: ES)
  Receive Date: 20180205
  Receipt Date: 20180205
  Transmission Date: 20180509
  Serious: Yes (Hospitalization)
  Sender: FDA-Public Use
  Company Number: ES-PFIZER INC-2018046520

PATIENT
  Age: 60 Year
  Sex: Female

DRUGS (3)
  1. REXER [Interacting]
     Active Substance: MIRTAZAPINE
     Indication: AGITATED DEPRESSION
     Dosage: 15 MG, UNK
     Route: 048
     Dates: start: 20160419, end: 201801
  2. PRISTIQ EXTENDED-RELEASE [Suspect]
     Active Substance: DESVENLAFAXINE SUCCINATE
     Indication: AGITATED DEPRESSION
     Dosage: 200MG EVERY 24 HOURS
     Route: 048
     Dates: start: 20160419, end: 20171230
  3. TRAMADOL HCL [Interacting]
     Active Substance: TRAMADOL HYDROCHLORIDE
     Dosage: 150MG EVERY 12 HOURS
     Route: 048
     Dates: start: 20171108, end: 20171222

REACTIONS (2)
  - Serotonin syndrome [Recovering/Resolving]
  - Drug interaction [Recovering/Resolving]

NARRATIVE: CASE EVENT DATE: 20171215
